FAERS Safety Report 16092810 (Version 2)
Quarter: 2019Q2

REPORT INFORMATION
  Report Type: Spontaneous
  Country: US (occurrence: US)
  Receive Date: 20190320
  Receipt Date: 20190411
  Transmission Date: 20190711
  Serious: No
  Sender: FDA-Public Use
  Company Number: US-GLAXOSMITHKLINE-US2019047865

PATIENT
  Sex: Female

DRUGS (1)
  1. ADVAIR DISKUS [Suspect]
     Active Substance: FLUTICASONE PROPIONATE\SALMETEROL XINAFOATE
     Indication: CHRONIC OBSTRUCTIVE PULMONARY DISEASE
     Dosage: 1 PUFF(S), BID
     Route: 055
     Dates: start: 2009

REACTIONS (6)
  - Blood blister [Not Recovered/Not Resolved]
  - Rash pruritic [Unknown]
  - Skin atrophy [Unknown]
  - Scar [Unknown]
  - Pain of skin [Unknown]
  - Blister [Unknown]

NARRATIVE: CASE EVENT DATE: 20180915
